FAERS Safety Report 6542601-0 (Version None)
Quarter: 2010Q1

REPORT INFORMATION
  Report Type: 
  Country: None (occurrence: None)
  Receive Date: 20100119
  Receipt Date: 20100108
  Transmission Date: 20100710
  Serious: Yes (Death, Hospitalization)
  Sender: FDA-Public Use
  Company Number: US-BAXTER-2010BH000611

PATIENT
  Sex: Female

DRUGS (4)
  1. DIANEAL [Suspect]
     Indication: PERITONEAL DIALYSIS
     Route: 033
     Dates: start: 20091001, end: 20091101
  2. DIANEAL [Suspect]
     Route: 033
     Dates: end: 20090901
  3. DIANEAL [Suspect]
     Indication: PERITONEAL DIALYSIS
     Route: 033
     Dates: start: 20091101, end: 20091101
  4. DIANEAL [Suspect]
     Route: 033
     Dates: start: 20090901, end: 20091001

REACTIONS (3)
  - DIABETIC FOOT [None]
  - FAILURE TO THRIVE [None]
  - SEPSIS [None]
